FAERS Safety Report 7672271-X (Version None)
Quarter: 2011Q3

REPORT INFORMATION
  Report Type: 
  Country: None (occurrence: None)
  Receive Date: 20110809
  Receipt Date: 20110729
  Transmission Date: 20111222
  Serious: Yes (Hospitalization)
  Sender: FDA-Public Use
  Company Number: US-UCBSA-038121

PATIENT
  Age: 46 Year
  Sex: Male

DRUGS (2)
  1. LEVETIRACETAM [Suspect]
     Indication: EPILEPSY
     Route: 048
     Dates: start: 20100603
  2. TEGRETOL [Concomitant]
     Indication: EPILEPSY
     Dates: start: 19700729

REACTIONS (2)
  - CARDIOMYOPATHY [None]
  - ATRIOVENTRICULAR BLOCK COMPLETE [None]
